FAERS Safety Report 8088226 (Version 3)
Quarter: 2013Q4

REPORT INFORMATION
  Report Type: Spontaneous
  Country: US (occurrence: US)
  Receive Date: 20110812
  Receipt Date: 20131022
  Transmission Date: 20140711
  Serious: Yes (Hospitalization, Other)
  Sender: FDA-Public Use
  Company Number: US-ROCHE-795898

PATIENT
  Age: 25 Year
  Sex: Female
  Weight: 56.75 kg

DRUGS (4)
  1. ACCUTANE [Suspect]
     Indication: ACNE
     Route: 065
  2. ACCUTANE [Suspect]
     Route: 065
  3. ACCUTANE [Suspect]
     Route: 065
     Dates: start: 19911108, end: 19920416
  4. ACCUTANE [Suspect]
     Route: 065

REACTIONS (9)
  - Depression [Unknown]
  - Suicide attempt [Unknown]
  - Colitis ulcerative [Unknown]
  - Inflammatory bowel disease [Unknown]
  - Large intestine polyp [Unknown]
  - Injury [Unknown]
  - Bipolar disorder [Unknown]
  - Irritable bowel syndrome [Unknown]
  - Dry skin [Unknown]
